FAERS Safety Report 9459811 (Version 1)
Quarter: 2013Q3

REPORT INFORMATION
  Report Type: Spontaneous
  Country: FR (occurrence: FR)
  Receive Date: 20130815
  Receipt Date: 20130815
  Transmission Date: 20140515
  Serious: Yes (Hospitalization)
  Sender: FDA-Public Use
  Company Number: FR-PFIZER INC-2013234952

PATIENT
  Age: 29 Year
  Sex: Male

DRUGS (10)
  1. LYRICA [Suspect]
     Dosage: 400 MG, DAILY
     Route: 048
     Dates: start: 201302, end: 2013
  2. LYRICA [Suspect]
     Dosage: UNK
     Route: 048
     Dates: end: 20130617
  3. XEROQUEL [Suspect]
     Dosage: 400 MG, 1X/DAY
     Route: 048
     Dates: start: 20130405, end: 20130503
  4. DEPAKOTE [Concomitant]
  5. TERCIAN [Concomitant]
  6. CONTRAMAL [Concomitant]
  7. XATRAL [Concomitant]
  8. UROREC [Concomitant]
  9. SPIRONOLACTONE [Concomitant]
  10. METHADONE [Concomitant]

REACTIONS (4)
  - Weight increased [Recovered/Resolved]
  - Generalised oedema [Recovered/Resolved]
  - Oedema peripheral [Unknown]
  - Ascites [Unknown]
